FAERS Safety Report 25503419 (Version 2)
Quarter: 2025Q3

REPORT INFORMATION
  Report Type: Spontaneous
  Country: EU (occurrence: EU)
  Receive Date: 20250702
  Receipt Date: 20250714
  Transmission Date: 20251021
  Serious: Yes (Life-Threatening, Other)
  Sender: AUROBINDO
  Company Number: EU-SA-2019SA350129

PATIENT
  Age: 13 Month
  Sex: Female

DRUGS (25)
  1. IRINOTECAN [Suspect]
     Active Substance: IRINOTECAN
     Indication: Benign lung neoplasm
     Route: 042
     Dates: start: 201604, end: 201609
  2. VINCRISTINE [Suspect]
     Active Substance: VINCRISTINE
     Indication: Benign lung neoplasm
     Route: 065
  3. VINCRISTINE [Suspect]
     Active Substance: VINCRISTINE
     Route: 065
     Dates: start: 201604, end: 201609
  4. IFOSFAMIDE [Suspect]
     Active Substance: IFOSFAMIDE
     Indication: Benign lung neoplasm
     Route: 065
  5. IFOSFAMIDE [Suspect]
     Active Substance: IFOSFAMIDE
     Indication: Benign lung neoplasm
     Route: 065
     Dates: start: 201604, end: 201609
  6. IFOSFAMIDE [Suspect]
     Active Substance: IFOSFAMIDE
     Route: 065
     Dates: start: 201604, end: 201609
  7. DACTINOMYCIN [Suspect]
     Active Substance: DACTINOMYCIN
     Indication: Benign lung neoplasm
     Route: 065
  8. DACTINOMYCIN [Suspect]
     Active Substance: DACTINOMYCIN
     Indication: Benign lung neoplasm
     Route: 065
     Dates: start: 201604, end: 201609
  9. TEMOZOLOMIDE [Suspect]
     Active Substance: TEMOZOLOMIDE
     Indication: Benign lung neoplasm
     Route: 042
     Dates: start: 201604, end: 201609
  10. TEMOZOLOMIDE [Suspect]
     Active Substance: TEMOZOLOMIDE
     Indication: Chondroma
     Route: 042
     Dates: start: 201801, end: 201807
  11. TEMOZOLOMIDE [Suspect]
     Active Substance: TEMOZOLOMIDE
     Route: 065
  12. TOPOTECAN [Suspect]
     Active Substance: TOPOTECAN HYDROCHLORIDE
     Indication: Benign lung neoplasm
     Route: 065
  13. TOPOTECAN [Suspect]
     Active Substance: TOPOTECAN HYDROCHLORIDE
     Indication: Chondroma
     Route: 042
     Dates: start: 201801, end: 201801
  14. NAVELBINE [Suspect]
     Active Substance: VINORELBINE TARTRATE
     Indication: Benign lung neoplasm
     Dosage: 1 DOSAGE FORM, ONCE A DAY (RECEIVED ON DAY 1, 8 AND 15)
     Route: 065
     Dates: start: 201702, end: 201705
  15. NAVELBINE [Suspect]
     Active Substance: VINORELBINE TARTRATE
     Indication: Chondroma
  16. YONDELIS [Suspect]
     Active Substance: TRABECTEDIN
     Indication: Benign lung neoplasm
     Route: 065
     Dates: start: 201705, end: 201711
  17. YONDELIS [Suspect]
     Active Substance: TRABECTEDIN
     Indication: Chondroma
  18. BEVACIZUMAB [Suspect]
     Active Substance: BEVACIZUMAB
     Indication: Benign lung neoplasm
     Route: 042
  19. BEVACIZUMAB [Suspect]
     Active Substance: BEVACIZUMAB
     Indication: Chondroma
     Route: 065
  20. BEVACIZUMAB [Suspect]
     Active Substance: BEVACIZUMAB
     Route: 042
     Dates: start: 201807, end: 201807
  21. CYCLOPHOSPHAMIDE [Suspect]
     Active Substance: CYCLOPHOSPHAMIDE
     Indication: Benign lung neoplasm
     Route: 065
     Dates: start: 201702
  22. CYCLOPHOSPHAMIDE [Suspect]
     Active Substance: CYCLOPHOSPHAMIDE
     Indication: Chondroma
  23. TEMOZOLOMIDE [Suspect]
     Active Substance: TEMOZOLOMIDE
     Indication: Benign lung neoplasm
     Route: 065
  24. TEMOZOLOMIDE [Suspect]
     Active Substance: TEMOZOLOMIDE
     Route: 042
     Dates: start: 201604
  25. TEMOZOLOMIDE [Suspect]
     Active Substance: TEMOZOLOMIDE
     Route: 042
     Dates: start: 201801

REACTIONS (7)
  - Neutropenia [Not Recovered/Not Resolved]
  - Toxicity to various agents [Unknown]
  - Nausea [Not Recovered/Not Resolved]
  - Vomiting [Not Recovered/Not Resolved]
  - Product use in unapproved indication [Unknown]
  - Renal disorder [Unknown]
  - Drug ineffective for unapproved indication [Unknown]

NARRATIVE: CASE EVENT DATE: 20160101
